FAERS Safety Report 12320456 (Version 1)
Quarter: 2016Q2

REPORT INFORMATION
  Report Type: Spontaneous
  Country: TW (occurrence: TW)
  Receive Date: 20160501
  Receipt Date: 20160501
  Transmission Date: 20160815
  Serious: Yes (Hospitalization, Other)
  Sender: FDA-Public Use
  Company Number: TW-SA-2016SA080563

PATIENT
  Age: 9 Year
  Sex: Male

DRUGS (2)
  1. MYOZYME [Suspect]
     Active Substance: ALGLUCOSIDASE ALFA
     Indication: GLYCOGEN STORAGE DISEASE TYPE II
     Route: 041
     Dates: start: 20070214
  2. MYOZYME [Suspect]
     Active Substance: ALGLUCOSIDASE ALFA
     Indication: GLYCOGEN STORAGE DISEASE TYPE II
     Route: 041
     Dates: start: 2012

REACTIONS (16)
  - Tachycardia [Unknown]
  - Pyrexia [Unknown]
  - Tachypnoea [Unknown]
  - Rhinorrhoea [Unknown]
  - Muscular weakness [Unknown]
  - Fatigue [Unknown]
  - Pneumonia [Unknown]
  - Productive cough [Recovered/Resolved]
  - Foot fracture [Unknown]
  - Tendon discomfort [Unknown]
  - Ligament sprain [Unknown]
  - Dyslalia [Unknown]
  - Macroglossia [Unknown]
  - Dysstasia [Unknown]
  - Disturbance in attention [Unknown]
  - Fall [Unknown]

NARRATIVE: CASE EVENT DATE: 20160415
